FAERS Safety Report 9932929 (Version 1)
Quarter: 2014Q1

REPORT INFORMATION
  Report Type: Spontaneous
  Country: FR (occurrence: None)
  Receive Date: 20140226
  Receipt Date: 20140226
  Transmission Date: 20141002
  Serious: Yes (Other)
  Sender: FDA-Public Use
  Company Number: 2014FR0073

PATIENT
  Age: 47 Year
  Sex: Male

DRUGS (1)
  1. KINERET (ANAKINRA), NOT AVAILABLE [Suspect]
     Indication: FAMILIAL MEDITERRANEAN FEVER

REACTIONS (1)
  - Type 1 diabetes mellitus [None]
